FAERS Safety Report 21215237 (Version 1)
Quarter: 2022Q3

REPORT INFORMATION
  Report Type: Spontaneous
  Country: DE (occurrence: DE)
  Receive Date: 20220816
  Receipt Date: 20220816
  Transmission Date: 20221026
  Serious: Yes (Life-Threatening, Other)
  Sender: FDA-Public Use
  Company Number: None

PATIENT
  Age: 70 Year
  Sex: Male
  Weight: 90 kg

DRUGS (54)
  1. CEFUROXIME AXETIL [Suspect]
     Active Substance: CEFUROXIME AXETIL
     Indication: Infection
     Dosage: 1000 MILLIGRAM, EVERY 1 DAY
     Route: 048
     Dates: start: 19940926, end: 19941006
  2. CEFUROXIME AXETIL [Suspect]
     Active Substance: CEFUROXIME AXETIL
     Dosage: 4 MILLIGRAM, EVERY 1 DAY
     Route: 042
     Dates: start: 19940923, end: 19940926
  3. CEFUROXIME AXETIL [Suspect]
     Active Substance: CEFUROXIME AXETIL
     Dosage: 4 MILLIGRAM, EVERY 1 DAY
     Route: 042
     Dates: start: 19940919, end: 19940919
  4. ACETYLCYSTEINE [Suspect]
     Active Substance: ACETYLCYSTEINE
     Indication: Cough
     Dosage: 3 DOSAGE FORM, EVERY 1 DAY
     Route: 048
     Dates: start: 19940916, end: 19940919
  5. ACETYLCYSTEINE [Suspect]
     Active Substance: ACETYLCYSTEINE
     Dosage: 2 DOSAGE FORM, EVERY 1 DAY
     Route: 048
     Dates: start: 19940921, end: 19940926
  6. ACETYLCYSTEINE [Suspect]
     Active Substance: ACETYLCYSTEINE
     Dosage: 3 DOSAGE FORM, EVERY 1 DAY
     Route: 048
     Dates: start: 19940926, end: 19941004
  7. CLONAZEPAM [Suspect]
     Active Substance: CLONAZEPAM
     Indication: Seizure
     Dosage: 1 MILLIGRAM, 1 TOTAL
     Route: 042
     Dates: start: 19940922, end: 19940922
  8. ASPIRIN\CAFFEINE\CARBROMAL\PHENACETIN [Suspect]
     Active Substance: ASPIRIN\CAFFEINE\CARBROMAL\PHENACETIN
     Indication: Pain
     Dosage: UNK
     Route: 065
     Dates: start: 19940917, end: 19940917
  9. SULFAMETHOXAZOLE\TRIMETHOPRIM [Suspect]
     Active Substance: SULFAMETHOXAZOLE\TRIMETHOPRIM
     Indication: Infection
     Dosage: 2 DOSAGE FORM, EVERY 1 DAY
     Route: 048
     Dates: start: 19940913, end: 19940918
  10. DIAZEPAM [Suspect]
     Active Substance: DIAZEPAM
     Indication: Seizure
     Dosage: 5 MILLIGRAM, TOTAL
     Route: 042
     Dates: start: 19940922, end: 19940922
  11. DIAZEPAM [Suspect]
     Active Substance: DIAZEPAM
     Dosage: 5 MILLIGRAM, TOTAL
     Route: 042
     Dates: start: 19940923, end: 19940923
  12. ASCORBIC ACID\FERROUS SULFATE\SODIUM BICARBONATE [Suspect]
     Active Substance: ASCORBIC ACID\FERROUS SULFATE\SODIUM BICARBONATE
     Indication: Nutritional supplementation
     Dosage: UNK
     Route: 048
     Dates: start: 19941005, end: 19941006
  13. DEXAMETHASONE [Suspect]
     Active Substance: DEXAMETHASONE
     Indication: Prophylaxis
     Dosage: UNK
     Route: 042
     Dates: start: 19940919, end: 19940924
  14. DEXAMETHASONE [Suspect]
     Active Substance: DEXAMETHASONE
     Dosage: UNK
     Route: 042
     Dates: end: 19940919
  15. HETASTARCH [Suspect]
     Active Substance: HETASTARCH
     Indication: Hypovolaemia
     Dosage: UNK
     Route: 042
     Dates: start: 19940923, end: 19940926
  16. HEPARIN SODIUM [Suspect]
     Active Substance: HEPARIN SODIUM
     Indication: Thrombosis prophylaxis
     Dosage: 15000 IU INTERNATIONAL UNIT(S), EVERY 1 DAY
     Route: 058
     Dates: start: 19940922, end: 19940926
  17. LASIX [Suspect]
     Active Substance: FUROSEMIDE
     Indication: Oedema
     Dosage: UNK
     Route: 042
     Dates: start: 19940919, end: 19940920
  18. PERIAMIN X [Suspect]
     Active Substance: AMINO ACIDS\ELECTROLYTES NOS\XYLITOL
     Indication: Nutritional supplementation
     Dosage: UNK
     Route: 042
     Dates: start: 19940922, end: 19940924
  19. CODEINE\PHENYLTOLOXAMINE [Suspect]
     Active Substance: CODEINE\PHENYLTOLOXAMINE
     Indication: Cough
     Dosage: UNK
     Route: 048
     Dates: start: 19940912, end: 19940913
  20. CODEINE\PHENYLTOLOXAMINE [Suspect]
     Active Substance: CODEINE\PHENYLTOLOXAMINE
     Dosage: UNK
     Route: 048
     Dates: start: 19941004, end: 19941006
  21. PHENYTOIN [Suspect]
     Active Substance: PHENYTOIN
     Indication: Seizure prophylaxis
     Dosage: 500 MILLIGRAM, EVERY 1 DAY
     Route: 042
     Dates: start: 19940919, end: 19940921
  22. CLORAZEPATE DIPOTASSIUM [Suspect]
     Active Substance: CLORAZEPATE DIPOTASSIUM
     Indication: Premedication
     Dosage: UNK
     Route: 048
     Dates: start: 19940913, end: 19940913
  23. CLORAZEPATE DIPOTASSIUM [Suspect]
     Active Substance: CLORAZEPATE DIPOTASSIUM
     Dosage: UNK
     Route: 048
     Dates: start: 19940918, end: 19940918
  24. CARBAMAZEPINE [Suspect]
     Active Substance: CARBAMAZEPINE
     Indication: Seizure prophylaxis
     Dosage: 200 MILLIGRAM, EVERY 1 DAY
     Route: 048
     Dates: start: 19940920
  25. SUCRALFATE [Suspect]
     Active Substance: SUCRALFATE
     Indication: Ulcer
     Dosage: 3 DOSAGE FORM, EVERY 1 DAY
     Route: 048
     Dates: start: 19940926, end: 19941004
  26. PHENYTOIN [Suspect]
     Active Substance: PHENYTOIN
     Indication: Seizure prophylaxis
     Dosage: 3 DOSAGE FORM, EVERY 1 DAY
     Route: 048
     Dates: start: 19940830, end: 19940919
  27. ADALAT [Concomitant]
     Active Substance: NIFEDIPINE
     Indication: Hypertonia
     Dosage: UNK
     Route: 048
  28. ADALAT [Concomitant]
     Active Substance: NIFEDIPINE
     Dosage: 2 DOSAGE FORM, EVERY 1 DAY
     Route: 060
     Dates: end: 19940925
  29. CAFEDRINE HYDROCHLORIDE\THEODRENALINE [Concomitant]
     Active Substance: CAFEDRINE HYDROCHLORIDE\THEODRENALINE
     Indication: Hypotension
     Dosage: UNK
     Route: 042
     Dates: start: 19940919, end: 19940919
  30. PIRETANIDE [Concomitant]
     Active Substance: PIRETANIDE
     Indication: Cardiac failure
     Dosage: UNK
     Route: 048
  31. Atosil [Concomitant]
     Indication: Restlessness
     Dosage: UNK
     Route: 042
     Dates: start: 19940920, end: 19940920
  32. ATROPINE [Concomitant]
     Active Substance: ATROPINE
     Indication: Induction of anaesthesia
     Dosage: UNK
     Route: 042
     Dates: start: 19940919, end: 19940919
  33. BENADRYL [Concomitant]
     Active Substance: DIPHENHYDRAMINE HYDROCHLORIDE
     Indication: Cough
     Dosage: 1 DOSAGE FORM
     Route: 048
     Dates: end: 19941006
  34. Bepanthen [Concomitant]
     Indication: Oropharyngeal pain
     Dosage: UNK
     Route: 048
     Dates: end: 19940914
  35. CLONIDINE [Concomitant]
     Active Substance: CLONIDINE
     Indication: Hypertonia
     Dosage: UNK
     Route: 058
     Dates: end: 19940913
  36. DICLOFENAC [Concomitant]
     Active Substance: DICLOFENAC
     Indication: Product used for unknown indication
     Dosage: UNK
     Route: 048
     Dates: start: 19940913, end: 19940913
  37. DOBUTREX [Concomitant]
     Active Substance: DOBUTAMINE HYDROCHLORIDE
     Indication: Cardiac disorder
     Dosage: UNK
     Route: 042
     Dates: start: 19940919, end: 19940920
  38. DROPERIDOL [Concomitant]
     Active Substance: DROPERIDOL
     Indication: Induction of anaesthesia
     Dosage: 7.5 MILLIGRAM, EVERY 1 DAY
     Route: 042
     Dates: start: 19940919, end: 19940919
  39. URAPIDIL [Concomitant]
     Active Substance: URAPIDIL
     Indication: Hypertension
     Dosage: 500 MILLIGRAM, EVERY 1 DAY
     Route: 042
     Dates: start: 19940919, end: 19940919
  40. FENTANYL [Concomitant]
     Active Substance: FENTANYL
     Indication: Induction of anaesthesia
     Dosage: UNK,  EVERY 1 DAY
     Route: 042
     Dates: start: 19940919, end: 19940919
  41. HALOTHANE [Concomitant]
     Active Substance: HALOTHANE
     Indication: Induction of anaesthesia
     Dosage: UNK
     Dates: start: 19940919, end: 19940919
  42. ISOFLURANE [Concomitant]
     Active Substance: ISOFLURANE
     Indication: Induction of anaesthesia
     Dosage: UNK
     Dates: start: 19940919, end: 19940919
  43. POTASSIUM CHLORIDE [Concomitant]
     Active Substance: POTASSIUM CHLORIDE
     Indication: Electrolyte substitution therapy
     Dosage: UNK
     Route: 042
     Dates: start: 19940919, end: 19940920
  44. NITROUS OXIDE [Concomitant]
     Active Substance: NITROUS OXIDE
     Indication: Induction of anaesthesia
     Dosage: UNK
     Dates: start: 19940919, end: 19940919
  45. OSMOFUNDIN [Concomitant]
     Indication: Prophylaxis
     Dosage: UNK
     Route: 042
     Dates: start: 19940919, end: 19940919
  46. SUCCINYLCHOLINE CHLORIDE [Concomitant]
     Active Substance: SUCCINYLCHOLINE CHLORIDE
     Indication: Induction of anaesthesia
     Dosage: UNK
     Route: 042
     Dates: start: 19940919, end: 19940919
  47. FLAVOXATE HYDROCHLORIDE [Concomitant]
     Active Substance: FLAVOXATE HYDROCHLORIDE
     Indication: Bladder disorder
     Dosage: 600 MILLIGRAM, EVERY 1 DAY
     Route: 048
     Dates: start: 19940914, end: 19940918
  48. CLEMASTINE FUMARATE [Concomitant]
     Active Substance: CLEMASTINE FUMARATE
     Indication: Hypersensitivity
     Dosage: 2 DOSAGE FORM, EVERY 1 DAY
     Route: 048
     Dates: start: 19941008
  49. TRACRIUM [Concomitant]
     Active Substance: ATRACURIUM BESYLATE
     Indication: Induction of anaesthesia
     Dosage: UNK
     Route: 042
     Dates: start: 19940919, end: 19940919
  50. TAGAMET [Concomitant]
     Active Substance: CIMETIDINE
     Indication: Hypersensitivity
     Dosage: 2 DOSAGE FORM, EVERY 1 DAY
     Route: 048
     Dates: start: 19941008
  51. Thrombophob [Concomitant]
     Indication: Thrombosis prophylaxis
     Dosage: UNK
     Route: 058
     Dates: end: 19940922
  52. THIOPENTAL SODIUM [Concomitant]
     Active Substance: THIOPENTAL SODIUM
     Indication: Induction of anaesthesia
     Dosage: UNK, 1 TOTAL
     Route: 042
     Dates: start: 19940919, end: 19940919
  53. METHYLPREDNISOLONE [Concomitant]
     Active Substance: METHYLPREDNISOLONE
     Indication: Hypersensitivity
     Dosage: UNK
     Route: 065
     Dates: start: 19941008
  54. TUTOFUSIN OP S [Concomitant]
     Indication: Electrolyte substitution therapy
     Dosage: UNK
     Route: 042
     Dates: start: 19940920, end: 19940926

REACTIONS (15)
  - Conjunctivitis [Recovering/Resolving]
  - Blood lactate dehydrogenase increased [Unknown]
  - Alanine aminotransferase increased [Unknown]
  - Gamma-glutamyltransferase increased [Unknown]
  - Pneumonia [Unknown]
  - Leukocytosis [Unknown]
  - Pyrexia [Recovering/Resolving]
  - Mucosal erosion [Recovering/Resolving]
  - Lymphocytosis [Unknown]
  - Stevens-Johnson syndrome [Recovering/Resolving]
  - Rash [Recovering/Resolving]
  - Blood urea increased [Unknown]
  - Aspartate aminotransferase increased [Unknown]
  - Toxic epidermal necrolysis [Unknown]
  - Blister [Recovering/Resolving]

NARRATIVE: CASE EVENT DATE: 19941006
